FAERS Safety Report 4538378-0 (Version None)
Quarter: 2004Q4

REPORT INFORMATION
  Report Type: 
  Country: None (occurrence: None)
  Receive Date: 20041221
  Receipt Date: 20041216
  Transmission Date: 20050328
  Serious: Yes (Other)
  Sender: FDA-Public Use
  Company Number: OMPQ-PR-0412S-1403

PATIENT
  Age: 68 Year
  Sex: Female
  Weight: 117.2 kg

DRUGS (19)
  1. OMNIPAQUE 140 [Suspect]
     Indication: CORONARY ARTERY DISEASE
     Dosage: 170 ML, SINGLE DOSE, I.A.
     Route: 013
     Dates: start: 20040422, end: 20040422
  2. PREDNISONE [Concomitant]
  3. DIPHENHYDRAMINE HCL (BENADRYL) [Concomitant]
  4. TAGAMET [Concomitant]
  5. COMBIVENT [Concomitant]
  6. FISH OIL [Concomitant]
  7. VITAMIN C [Concomitant]
  8. VITAMIN E [Concomitant]
  9. DIOVAN [Concomitant]
  10. HUMAN MIXTARD (NOVOLIN 70/30) [Concomitant]
  11. INSULIN HUMAN INJECTION, ISOPHANE (NOVOLIN N) [Concomitant]
  12. METFORMIN HCL [Concomitant]
  13. LEVOTHYROXINE SODIUM [Concomitant]
  14. FUROSEMIDE [Concomitant]
  15. DILTIAZEM ER (CD) [Concomitant]
  16. SERITIDE MITE (ADVAIR) [Concomitant]
  17. POTASSIUM CHLORIDE (KLOR-CON 10 ER) [Concomitant]
  18. FLUTICASONE PROPIONATE (FLONASE) [Concomitant]
  19. ASPIRIN [Concomitant]

REACTIONS (6)
  - BLISTER [None]
  - CONTRAST MEDIA REACTION [None]
  - DERMATITIS EXFOLIATIVE [None]
  - RASH ERYTHEMATOUS [None]
  - RASH GENERALISED [None]
  - RASH PRURITIC [None]
